FAERS Safety Report 19928698 (Version 1)
Quarter: 2021Q4

REPORT INFORMATION
  Report Type: Spontaneous
  Country: US (occurrence: US)
  Receive Date: 20211007
  Receipt Date: 20211007
  Transmission Date: 20220303
  Serious: No
  Sender: FDA-Public Use
  Company Number: US-LAVIPHARM SA-2120290

PATIENT
  Age: 11 Year

DRUGS (1)
  1. CATAPRES-TTS [Suspect]
     Active Substance: CLONIDINE
     Indication: Growth hormone deficiency
     Route: 063

REACTIONS (3)
  - Product use in unapproved indication [Unknown]
  - Intentional product misuse [Unknown]
  - Wrong technique in product usage process [Unknown]
